FAERS Safety Report 8484690-2 (Version None)
Quarter: 2012Q3

REPORT INFORMATION
  Report Type: 
  Country: None (occurrence: None)
  Receive Date: 20120703
  Receipt Date: 20120501
  Transmission Date: 20120928
  Serious: No
  Sender: FDA-Public Use
  Company Number: US-TEVA-336353USA

PATIENT
  Sex: Male
  Weight: 108.05 kg

DRUGS (11)
  1. ERGOCALCIFEROL [Concomitant]
     Indication: VITAMIN D DEFICIENCY
     Route: 048
     Dates: start: 20110101
  2. NUVIGIL [Suspect]
     Indication: SLEEP APNOEA SYNDROME
     Dosage: 150 MILLIGRAM;
     Route: 048
     Dates: start: 20120401, end: 20120428
  3. AMLODIPINE [Concomitant]
     Indication: HYPERTENSION
     Dosage: 120 MILLIGRAM;
     Route: 048
  4. NITROFUNGIN [Concomitant]
     Indication: URINARY TRACT INFECTION
     Dosage: 100 MILLIGRAM;
     Route: 048
  5. HYOSCYAMINE [Concomitant]
     Indication: MUSCLE SPASMS
     Route: 048
  6. PRAVASTATIN [Concomitant]
     Indication: BLOOD CHOLESTEROL
     Dosage: 40 MILLIGRAM;
     Route: 048
  7. BACLOFEN [Concomitant]
     Indication: MUSCLE SPASTICITY
     Route: 037
  8. GABAPENTIN [Concomitant]
     Indication: NEUROPATHY PERIPHERAL
     Dosage: 4000 MILLIGRAM;
     Route: 048
  9. PAROXETINE HCL [Concomitant]
     Indication: DEPRESSION
     Dosage: 30 MILLIGRAM;
     Route: 048
  10. BENAZEPRIL [Concomitant]
     Indication: HYPERTENSION
     Dosage: 20 MILLIGRAM;
     Route: 048
  11. CLONAZEPAM [Concomitant]
     Indication: MUSCLE SPASMS
     Dosage: 3 MILLIGRAM;
     Route: 048

REACTIONS (1)
  - GASTROINTESTINAL PAIN [None]
